FAERS Safety Report 16611060 (Version 1)
Quarter: 2019Q3

REPORT INFORMATION
  Report Type: Spontaneous
  Country: US (occurrence: US)
  Receive Date: 20190722
  Receipt Date: 20190722
  Transmission Date: 20191004
  Serious: No
  Sender: FDA-Public Use
  Company Number: US-SA-2019SA184778

PATIENT
  Sex: Male

DRUGS (1)
  1. DUPIXENT [Suspect]
     Active Substance: DUPILUMAB

REACTIONS (26)
  - Condition aggravated [Recovered/Resolved]
  - Condition aggravated [Unknown]
  - Dyspepsia [Unknown]
  - Conjunctivitis [Unknown]
  - Feeling abnormal [Unknown]
  - Rash [Unknown]
  - Asthma [Unknown]
  - Dyspnoea [Unknown]
  - Productive cough [Unknown]
  - Cold sweat [Unknown]
  - Malaise [Unknown]
  - Urticaria [Recovered/Resolved]
  - Infection [Unknown]
  - Product use issue [Unknown]
  - Nasal congestion [Unknown]
  - Rash [Recovered/Resolved]
  - Eye irritation [Unknown]
  - Skin exfoliation [Recovered/Resolved]
  - Pruritus [Recovered/Resolved]
  - Skin exfoliation [Unknown]
  - Rash macular [Unknown]
  - Inflammation [Recovered/Resolved]
  - Immune system disorder [Recovered/Resolved]
  - Swelling of eyelid [Unknown]
  - Skin fissures [Unknown]
  - Hypersensitivity [Recovered/Resolved]

NARRATIVE: CASE EVENT DATE: 2019
